FAERS Safety Report 20568629 (Version 1)
Quarter: 2022Q1

REPORT INFORMATION
  Report Type: Spontaneous
  Country: US (occurrence: US)
  Receive Date: 20220308
  Receipt Date: 20220308
  Transmission Date: 20220423
  Serious: No
  Sender: FDA-Public Use
  Company Number: US-PFIZER INC-202200205606

PATIENT
  Age: 61 Year
  Sex: Female
  Weight: 58.51 kg

DRUGS (1)
  1. GENOTROPIN [Suspect]
     Active Substance: SOMATROPIN
     Indication: Pituitary tumour benign
     Dosage: 0.2

REACTIONS (2)
  - Concussion [Unknown]
  - Off label use [Unknown]

NARRATIVE: CASE EVENT DATE: 20220117
